FAERS Safety Report 20809341 (Version 1)
Quarter: 2022Q2

REPORT INFORMATION
  Report Type: Spontaneous
  Country: AT (occurrence: AT)
  Receive Date: 20220510
  Receipt Date: 20220510
  Transmission Date: 20220721
  Serious: Yes (Other)
  Sender: FDA-Public Use
  Company Number: AT-PFIZER INC-202200648948

PATIENT
  Age: 43 Year
  Sex: Female

DRUGS (3)
  1. EXEMESTANE [Suspect]
     Active Substance: EXEMESTANE
     Indication: Breast cancer metastatic
     Dosage: UNK
  2. ABEMACICLIB MESYLATE [Suspect]
     Active Substance: ABEMACICLIB MESYLATE
     Indication: Breast cancer metastatic
     Dosage: UNK
  3. GOSERELIN [Suspect]
     Active Substance: GOSERELIN
     Indication: Breast cancer metastatic
     Dosage: UNK

REACTIONS (2)
  - Neutropenia [Unknown]
  - Arthralgia [Unknown]
